FAERS Safety Report 5194263-5 (Version None)
Quarter: 2006Q4

REPORT INFORMATION
  Report Type: 
  Country: None (occurrence: None)
  Receive Date: 20061228
  Receipt Date: 20061205
  Transmission Date: 20070319
  Serious: Yes (Life-Threatening, Hospitalization)
  Sender: FDA-Public Use
  Company Number: JP-BOEHRINGER INGELHEIM PHARMACEUTICALS, INC.-2006-BP-14166NB

PATIENT
  Sex: Male
  Weight: 65.5 kg

DRUGS (5)
  1. MICARDIS [Suspect]
     Indication: HYPERTENSION
     Route: 048
     Dates: start: 20060906
  2. TOBRACIN [Suspect]
     Route: 042
     Dates: start: 20061102, end: 20061110
  3. DAONIL [Concomitant]
     Route: 048
  4. CEFOTAX [Concomitant]
     Route: 042
     Dates: start: 20061102, end: 20061110
  5. GLIMICRON [Concomitant]
     Route: 048
     Dates: start: 20060623, end: 20061024

REACTIONS (3)
  - ACUTE MYOCARDIAL INFARCTION [None]
  - BLOOD POTASSIUM INCREASED [None]
  - DRUG INTERACTION [None]
